FAERS Safety Report 5833423-4 (Version None)
Quarter: 2008Q3

REPORT INFORMATION
  Report Type: 
  Country: None (occurrence: None)
  Receive Date: 20080731
  Receipt Date: 20080718
  Transmission Date: 20090109
  Serious: Yes (Death, Hospitalization)
  Sender: FDA-Public Use
  Company Number: 2008AL003418

PATIENT
  Age: 77 Year
  Sex: Male

DRUGS (5)
  1. DIGOXIN [Suspect]
     Indication: CARDIAC DISORDER
     Dosage: DAILY, PO
     Route: 048
  2. CARDIZEM [Concomitant]
  3. ATENOLOL [Concomitant]
  4. INSULIN [Concomitant]
  5. ASPIRIN [Concomitant]

REACTIONS (1)
  - SPINAL CORD COMPRESSION [None]
